FAERS Safety Report 4372650-2 (Version None)
Quarter: 2004Q2

REPORT INFORMATION
  Report Type: 
  Country: None (occurrence: None)
  Receive Date: 20040526
  Receipt Date: 20040506
  Transmission Date: 20050107
  Serious: Yes (Disabling)
  Sender: FDA-Public Use
  Company Number: TPA2004A00564

PATIENT
  Age: 64 Year
  Sex: Female
  Weight: 113.3993 kg

DRUGS (11)
  1. ACTOS [Suspect]
     Indication: DIABETES MELLITUS NON-INSULIN-DEPENDENT
     Dosage: 45 MG, 1 IN 1 D, PER ORAL
     Route: 048
     Dates: start: 20030506
  2. HUMULIN 70/30 [Concomitant]
  3. HUMULIN R [Concomitant]
  4. HUMULIN N [Concomitant]
  5. ASPIRIN [Concomitant]
  6. THEOPHYLLINE [Concomitant]
  7. METFORMIN HCL [Concomitant]
  8. ISOSORBIDE (ISOSORBIDE) [Concomitant]
  9. BENICAR [Concomitant]
  10. CARDIZEM LA (DILTIAZEM HYDROCHLORIDE) [Concomitant]
  11. PREDNISONE TAB [Concomitant]

REACTIONS (1)
  - CARPAL TUNNEL SYNDROME [None]
